FAERS Safety Report 6396432-5 (Version None)
Quarter: 2009Q4

REPORT INFORMATION
  Report Type: 
  Country: None (occurrence: None)
  Receive Date: 20091012
  Receipt Date: 20091005
  Transmission Date: 20100525
  Serious: Yes (Death, Life-Threatening, Hospitalization)
  Sender: FDA-Public Use
  Company Number: BE-WYE-G04362409

PATIENT
  Age: 74 Year
  Sex: Female
  Weight: 55 kg

DRUGS (4)
  1. TORISEL [Suspect]
     Indication: RENAL CELL CARCINOMA
     Route: 042
     Dates: start: 20090217, end: 20090804
  2. APROVEL [Concomitant]
     Route: 048
     Dates: end: 20090912
  3. FRAXODI [Concomitant]
     Dosage: NOT PROVIDED
     Route: 058
     Dates: start: 20090804, end: 20090912
  4. VENOFER [Concomitant]
     Indication: ANAEMIA
     Route: 042
     Dates: start: 20090728, end: 20090804

REACTIONS (2)
  - CARDIAC FAILURE [None]
  - PNEUMONIA [None]
